FAERS Safety Report 7121932-X (Version None)
Quarter: 2010Q4

REPORT INFORMATION
  Report Type: 
  Country: None (occurrence: None)
  Receive Date: 20101124
  Receipt Date: 20101122
  Transmission Date: 20110411
  Serious: Yes (Death)
  Sender: FDA-Public Use
  Company Number: US-US-EMD SERONO, INC.-7028766

PATIENT
  Sex: Female

DRUGS (1)
  1. REBIF [Suspect]
     Indication: MULTIPLE SCLEROSIS
     Dates: start: 20021231, end: 20041201

REACTIONS (1)
  - LUNG NEOPLASM MALIGNANT [None]
